FAERS Safety Report 7570134-1 (Version None)
Quarter: 2011Q2

REPORT INFORMATION
  Report Type: 
  Country: None (occurrence: None)
  Receive Date: 20110620
  Receipt Date: 20110614
  Transmission Date: 20111010
  Serious: Yes (Hospitalization, Other)
  Sender: FDA-Public Use
  Company Number: ACO_23642_2011

PATIENT
  Age: 63 Year
  Sex: Female
  Weight: 55.8 kg

DRUGS (15)
  1. ERGOCALCIFEROL [Concomitant]
  2. LEXAPRO [Concomitant]
  3. LISINOPRIL [Concomitant]
  4. SENNA /00142201/ (SENNA ALEXANDRINA) [Concomitant]
  5. CARVEDILOL [Concomitant]
  6. OXYBUTYNIN (OXYBUTYNIN) [Concomitant]
  7. NORVASC [Concomitant]
  8. OMEPRAZOLE [Concomitant]
  9. VITAMIN E /00110501/ (TOCOPHEROL) [Concomitant]
  10. AMPYRA [Suspect]
     Indication: MULTIPLE SCLEROSIS
     Dosage: 10 MG
     Dates: start: 20110415, end: 20110418
  11. AMPYRA [Suspect]
     Indication: MULTIPLE SCLEROSIS
     Dosage: 10 MG
     Dates: start: 20110419, end: 20110101
  12. AMPYRA [Suspect]
     Indication: MULTIPLE SCLEROSIS
     Dosage: 10 MG
     Dates: start: 20110201, end: 20110101
  13. AMPYRA [Suspect]
     Indication: MULTIPLE SCLEROSIS
     Dosage: 10 MG
     Dates: start: 20100601, end: 20101201
  14. NUVIGIL [Concomitant]
  15. CALCIUM (CALCIUM) [Concomitant]

REACTIONS (9)
  - INCONTINENCE [None]
  - CYSTITIS [None]
  - UNRESPONSIVE TO STIMULI [None]
  - HYPOPNOEA [None]
  - CEREBRAL ISCHAEMIA [None]
  - MENTAL STATUS CHANGES [None]
  - INAPPROPRIATE SCHEDULE OF DRUG ADMINISTRATION [None]
  - URINARY TRACT INFECTION [None]
  - MULTIPLE SCLEROSIS RELAPSE [None]
